FAERS Safety Report 23205582 (Version 1)
Quarter: 2023Q4

REPORT INFORMATION
  Report Type: Spontaneous
  Country: US (occurrence: US)
  Receive Date: 20231120
  Receipt Date: 20231120
  Transmission Date: 20240110
  Serious: Yes (Other)
  Sender: FDA-Public Use
  Company Number: US-ALKERMES INC.-ALK-2023-004381

PATIENT
  Age: 45 Year
  Sex: Female

DRUGS (5)
  1. VIVITROL [Suspect]
     Active Substance: NALTREXONE
     Indication: Alcoholism
     Dosage: 380 MILLIGRAM, QMO
     Route: 030
     Dates: start: 20231024
  2. MORPHINE [Suspect]
     Active Substance: MORPHINE
     Indication: Injection site pain
     Dosage: UNK
     Route: 065
     Dates: start: 20231103
  3. ACETAMINOPHEN\OXYCODONE HYDROCHLORIDE\OXYCODONE TEREPHTHALATE [Suspect]
     Active Substance: ACETAMINOPHEN\OXYCODONE HYDROCHLORIDE\OXYCODONE TEREPHTHALATE
     Indication: Injection site pain
     Dosage: UNK
     Route: 065
     Dates: start: 20231103
  4. ZOLOFT [Concomitant]
     Active Substance: SERTRALINE HYDROCHLORIDE
     Indication: Product used for unknown indication
     Dosage: UNK
     Route: 065
  5. TRAZODONE [Concomitant]
     Active Substance: TRAZODONE HYDROCHLORIDE
     Indication: Product used for unknown indication
     Dosage: UNK
     Route: 065

REACTIONS (5)
  - Pneumonia [Recovered/Resolved]
  - Contraindicated product administered [Recovered/Resolved]
  - Limb mass [Recovered/Resolved]
  - Inadequate analgesia [Recovered/Resolved]
  - Injection site haematoma [Recovered/Resolved]

NARRATIVE: CASE EVENT DATE: 20231024
